FAERS Safety Report 11292040 (Version 1)
Quarter: 2015Q3

REPORT INFORMATION
  Report Type: Spontaneous
  Country: US (occurrence: None)
  Receive Date: 20150721
  Receipt Date: 20150721
  Transmission Date: 20151125
  Serious: Yes (Other)
  Sender: FDA-Public Use
  Company Number: None

PATIENT
  Age: 20 Year
  Sex: Female
  Weight: 61.24 kg

DRUGS (1)
  1. NUVARING [Suspect]
     Active Substance: ETHINYL ESTRADIOL\ETONOGESTREL
     Indication: CONTRACEPTION
     Dosage: 1 RING
     Route: 067

REACTIONS (7)
  - Anxiety [None]
  - Choking sensation [None]
  - Fatigue [None]
  - Blood glucose decreased [None]
  - Nausea [None]
  - Panic attack [None]
  - Cervix haemorrhage uterine [None]

NARRATIVE: CASE EVENT DATE: 20111015
